FAERS Safety Report 25382669 (Version 1)
Quarter: 2025Q2

REPORT INFORMATION
  Report Type: Spontaneous
  Country: AU (occurrence: AU)
  Receive Date: 20250601
  Receipt Date: 20250601
  Transmission Date: 20250716
  Serious: Yes (Other)
  Sender: UCB
  Company Number: AU-UCBSA-2025032084

PATIENT
  Age: 68 Year
  Sex: Female

DRUGS (1)
  1. BIMEKIZUMAB [Suspect]
     Active Substance: BIMEKIZUMAB
     Indication: Psoriatic arthropathy

REACTIONS (1)
  - Stevens-Johnson syndrome [Recovered/Resolved]
